FAERS Safety Report 12108841 (Version 2)
Quarter: 2016Q2

REPORT INFORMATION
  Report Type: Report from Study
  Country: US (occurrence: US)
  Receive Date: 20160224
  Receipt Date: 20160523
  Transmission Date: 20160815
  Serious: Yes (Other)
  Sender: FDA-Public Use
  Company Number: US-AMGEN-USASL2016020518

PATIENT
  Age: 67 Year
  Sex: Female

DRUGS (1)
  1. ENBREL [Suspect]
     Active Substance: ETANERCEPT
     Indication: RHEUMATOID ARTHRITIS
     Dosage: 25 MG, 2 TIMES/WK
     Route: 065
     Dates: start: 20020801

REACTIONS (14)
  - Rash [Unknown]
  - Skin mass [Unknown]
  - Eye disorder [Unknown]
  - Respiratory disorder [Unknown]
  - Upper respiratory tract congestion [Unknown]
  - Neck mass [Unknown]
  - Blood pressure increased [Unknown]
  - Feeling abnormal [Unknown]
  - Respiratory tract infection [Unknown]
  - Cough [Unknown]
  - Wheezing [Unknown]
  - Adverse drug reaction [Unknown]
  - Rheumatoid arthritis [Unknown]
  - Colonoscopy [Unknown]

NARRATIVE: CASE EVENT DATE: 201512
